FAERS Safety Report 9163408 (Version 3)
Quarter: 2014Q4

REPORT INFORMATION
  Report Type: Report from Study
  Country: CA (occurrence: CA)
  Receive Date: 20130314
  Receipt Date: 20141108
  Transmission Date: 20150529
  Serious: Yes (Hospitalization, Other)
  Sender: FDA-Public Use
  Company Number: CA-AMGEN-CANSP2013014892

PATIENT
  Age: 77 Year
  Sex: Female
  Weight: 56.36 kg

DRUGS (6)
  1. CALCIUM [Concomitant]
     Active Substance: CALCIUM
  2. VITAMIN D                          /00107901/ [Concomitant]
     Active Substance: ERGOCALCIFEROL
  3. AMLODIPINE\VALSARTAN [Concomitant]
     Active Substance: AMLODIPINE\VALSARTAN
     Indication: HYPERTENSION
  4. TURMERIC                           /01079601/ [Concomitant]
     Active Substance: TURMERIC
  5. ZOPICLONE [Concomitant]
     Active Substance: ZOPICLONE
     Indication: SLEEP DISORDER
  6. PROLIA [Suspect]
     Active Substance: DENOSUMAB
     Indication: OSTEOPOROSIS
     Dosage: 60 MG, Q6MO
     Route: 058
     Dates: start: 2012

REACTIONS (12)
  - Diarrhoea [Not Recovered/Not Resolved]
  - Colitis [Unknown]
  - Peritonitis [Unknown]
  - Large intestine perforation [Unknown]
  - Weight decreased [Unknown]
  - Wound infection [Unknown]
  - Colon adenoma [Unknown]
  - Scoliosis [Unknown]
  - Body height decreased [Unknown]
  - Diverticulum [Unknown]
  - Blood potassium abnormal [Unknown]
  - Fluid imbalance [Unknown]

NARRATIVE: CASE EVENT DATE: 201212
